FAERS Safety Report 4576037-9 (Version None)
Quarter: 2005Q1

REPORT INFORMATION
  Report Type: 
  Country: None (occurrence: None)
  Receive Date: 20050201
  Receipt Date: 20050201
  Transmission Date: 20050727
  Serious: Yes (Disabling)
  Sender: FDA-Public Use
  Company Number: None

PATIENT
  Age: 45 Year
  Sex: Male
  Weight: 73.9363 kg

DRUGS (2)
  1. ZICAM (ZN) [Suspect]
  2. (COLD-EEZE) [Suspect]

REACTIONS (1)
  - ANOSMIA [None]
